FAERS Safety Report 14090205 (Version 2)
Quarter: 2018Q1

REPORT INFORMATION
  Report Type: Report from Study
  Country: MX (occurrence: MX)
  Receive Date: 20171013
  Receipt Date: 20180214
  Transmission Date: 20180508
  Serious: Yes (Other)
  Sender: FDA-Public Use
  Company Number: MX-BRISTOL-MYERS SQUIBB COMPANY-BMS-2017-061452

PATIENT
  Age: 73 Year
  Sex: Female

DRUGS (1)
  1. ABATACEPT [Suspect]
     Active Substance: ABATACEPT
     Indication: RHEUMATOID ARTHRITIS
     Dosage: 125 MG, QWK
     Route: 058
     Dates: start: 20170628

REACTIONS (11)
  - Body temperature [Unknown]
  - Arthralgia [Unknown]
  - Renal pain [Unknown]
  - Drug ineffective [Unknown]
  - Weight decreased [Not Recovered/Not Resolved]
  - Decreased appetite [Unknown]
  - Chills [Unknown]
  - Bedridden [Unknown]
  - Kidney infection [Unknown]
  - Depression [Unknown]
  - Fatigue [Unknown]

NARRATIVE: CASE EVENT DATE: 20170821
